FAERS Safety Report 4391233-1 (Version None)
Quarter: 2004Q2

REPORT INFORMATION
  Report Type: 
  Country: None (occurrence: None)
  Receive Date: 20040621
  Receipt Date: 20040211
  Transmission Date: 20050107
  Serious: Yes (Other)
  Sender: FDA-Public Use
  Company Number: USA-2003-0005820

PATIENT
  Sex: Female

DRUGS (6)
  1. OXYCONTIN [Suspect]
     Dosage: 40 MG, BID, ORAL
     Route: 048
  2. PERCOCET [Concomitant]
  3. NAPROSYN [Concomitant]
  4. SOMA [Concomitant]
  5. CLONIDINE HCL [Concomitant]
  6. XANAX [Concomitant]

REACTIONS (7)
  - DRUG ABUSER [None]
  - DRUG DEPENDENCE [None]
  - EMOTIONAL DISTRESS [None]
  - HEADACHE [None]
  - INSOMNIA [None]
  - MALAISE [None]
  - PAIN [None]
